FAERS Safety Report 17089327 (Version 1)
Quarter: 2019Q4

REPORT INFORMATION
  Report Type: Spontaneous
  Country: US (occurrence: US)
  Receive Date: 20191128
  Receipt Date: 20191128
  Transmission Date: 20200122
  Serious: Yes (Hospitalization)
  Sender: FDA-Public Use
  Company Number: US-GLAXOSMITHKLINE-US2019AMR211560

PATIENT
  Sex: Female

DRUGS (2)
  1. LAMICTAL XR [Suspect]
     Active Substance: LAMOTRIGINE
     Indication: PRODUCT USED FOR UNKNOWN INDICATION
     Dosage: UNK, 25 MG
     Route: 065
     Dates: start: 2009
  2. LAMICTAL XR [Suspect]
     Active Substance: LAMOTRIGINE
     Dosage: UNK, 200 MG
     Route: 065
     Dates: start: 2009

REACTIONS (2)
  - Amnesia [Unknown]
  - Product dose omission [Unknown]
